FAERS Safety Report 17078813 (Version 1)
Quarter: 2019Q4

REPORT INFORMATION
  Report Type: Spontaneous
  Country: US (occurrence: US)
  Receive Date: 20191127
  Receipt Date: 20191127
  Transmission Date: 20200122
  Serious: No
  Sender: FDA-Public Use
  Company Number: US-AUROBINDO-AUR-APL-2019-063282

PATIENT
  Sex: Female

DRUGS (2)
  1. METFORMIN [Concomitant]
     Active Substance: METFORMIN HYDROCHLORIDE
     Indication: DIABETES MELLITUS
     Dosage: UNK
     Route: 065
  2. LOSARTAN POTASSIUM TABLETS USP 50MG [Suspect]
     Active Substance: LOSARTAN POTASSIUM
     Indication: BLOOD PRESSURE MEASUREMENT
     Dosage: UNK, ONE TABLET PER DAY
     Route: 065
     Dates: start: 201906

REACTIONS (8)
  - Dizziness [Not Recovered/Not Resolved]
  - Ear discomfort [Not Recovered/Not Resolved]
  - Malaise [Not Recovered/Not Resolved]
  - Rash [Not Recovered/Not Resolved]
  - Cough [Not Recovered/Not Resolved]
  - Urinary tract infection [Not Recovered/Not Resolved]
  - Vertigo [Not Recovered/Not Resolved]
  - Eye infection [Not Recovered/Not Resolved]
